APPROVED DRUG PRODUCT: CIS-PYRO
Active Ingredient: TECHNETIUM TC-99M PYROPHOSPHATE KIT
Strength: N/A
Dosage Form/Route: INJECTABLE;INJECTION
Application: N019039 | Product #001 | TE Code: AP
Applicant: SUN PHARMACEUTICAL INDUSTRIES INC
Approved: Jun 30, 1987 | RLD: No | RS: No | Type: RX